FAERS Safety Report 5591894-5 (Version None)
Quarter: 2008Q1

REPORT INFORMATION
  Report Type: 
  Country: None (occurrence: None)
  Receive Date: 20080115
  Receipt Date: 20080108
  Transmission Date: 20080703
  Serious: Yes (Other)
  Sender: FDA-Public Use
  Company Number: KR-ALLERGAN-0800335US

PATIENT
  Age: 26 Year
  Sex: Male

DRUGS (2)
  1. PRED FORTE [Suspect]
     Indication: ULCERATIVE KERATITIS
     Dosage: UNK, TID
     Route: 047
     Dates: start: 20030101
  2. OPTICROM [Suspect]
     Indication: ULCERATIVE KERATITIS
     Dosage: UNK, TID
     Route: 047
     Dates: start: 20030101

REACTIONS (3)
  - CONJUNCTIVAL CYST [None]
  - FOREIGN BODY SENSATION IN EYES [None]
  - PHOTOPSIA [None]
